FAERS Safety Report 17264319 (Version 1)
Quarter: 2020Q1

REPORT INFORMATION
  Report Type: Report from Study
  Country: US (occurrence: US)
  Receive Date: 20200113
  Receipt Date: 20200113
  Transmission Date: 20200409
  Serious: Yes (Death)
  Sender: FDA-Public Use
  Company Number: US-MYLANLABS-2020M1003644

PATIENT
  Sex: Female

DRUGS (9)
  1. AMBRISENTAN TABLETS [Suspect]
     Active Substance: AMBRISENTAN
     Indication: PRODUCT USED FOR UNKNOWN INDICATION
     Dosage: 10 MILLIGRAM
  2. SILDENAFIL. [Concomitant]
     Active Substance: SILDENAFIL
  3. LEVOTHYROXINE. [Concomitant]
     Active Substance: LEVOTHYROXINE
  4. ATORVASTATIN [Concomitant]
     Active Substance: ATORVASTATIN
  5. DIGOXIN. [Concomitant]
     Active Substance: DIGOXIN
  6. GLIPIZIDE. [Concomitant]
     Active Substance: GLIPIZIDE
  7. PREDNISONE. [Concomitant]
     Active Substance: PREDNISONE
  8. ASPIRIN                            /00002701/ [Concomitant]
     Active Substance: ASPIRIN
  9. BUMETANIDE. [Concomitant]
     Active Substance: BUMETANIDE

REACTIONS (1)
  - Death [Fatal]

NARRATIVE: CASE EVENT DATE: 20191231
